FAERS Safety Report 17018421 (Version 1)
Quarter: 2019Q4

REPORT INFORMATION
  Report Type: Spontaneous
  Country: US (occurrence: US)
  Receive Date: 20191111
  Receipt Date: 20191111
  Transmission Date: 20200122
  Serious: Yes (Other)
  Sender: FDA-Public Use
  Company Number: US-BEH-2019109193

PATIENT
  Age: 24 Year
  Sex: Female

DRUGS (1)
  1. HIZENTRA [Suspect]
     Active Substance: HUMAN IMMUNOGLOBULIN G
     Indication: HYPER IGE SYNDROME
     Dosage: 10 GRAM, QW
     Route: 065
     Dates: end: 201909

REACTIONS (1)
  - Drug ineffective [Unknown]
